FAERS Safety Report 24987915 (Version 2)
Quarter: 2025Q1

REPORT INFORMATION
  Report Type: Spontaneous
  Country: US (occurrence: US)
  Receive Date: 20250219
  Receipt Date: 20250228
  Transmission Date: 20250408
  Serious: No
  Sender: ROCHE
  Company Number: US-ROCHE-10000209359

PATIENT
  Sex: Male

DRUGS (2)
  1. XOLAIR [Suspect]
     Active Substance: OMALIZUMAB
     Indication: Urticaria
     Dosage: 300 MG/2 ML
     Route: 058
     Dates: start: 202501
  2. XOLAIR [Suspect]
     Active Substance: OMALIZUMAB
     Dosage: 300 MG/2 ML
     Route: 058

REACTIONS (3)
  - Drug ineffective [Unknown]
  - No adverse event [Unknown]
  - Off label use [Unknown]
